FAERS Safety Report 15728666 (Version 2)
Quarter: 2019Q1

REPORT INFORMATION
  Report Type: Report from Study
  Country: JP (occurrence: JP)
  Receive Date: 20181217
  Receipt Date: 20190301
  Transmission Date: 20190417
  Serious: Yes (Hospitalization, Other)
  Sender: FDA-Public Use
  Company Number: JP-ACTELION-A-CH2018-173636

PATIENT
  Age: 65 Year
  Sex: Female
  Weight: 62 kg

DRUGS (18)
  1. OXYGEN. [Concomitant]
     Active Substance: OXYGEN
  2. FUROSEMIDE. [Suspect]
     Active Substance: FUROSEMIDE
     Indication: RIGHT VENTRICULAR FAILURE
     Dosage: 20 MG, QD
     Route: 048
     Dates: start: 20170919, end: 20171011
  3. PARIET [Suspect]
     Active Substance: RABEPRAZOLE SODIUM
     Indication: GASTRITIS PROPHYLAXIS
     Dosage: 10 MG, QD
     Route: 048
     Dates: start: 20170905, end: 20171215
  4. PARIET [Suspect]
     Active Substance: RABEPRAZOLE SODIUM
     Dosage: 10 MG, QD
     Route: 048
     Dates: start: 20171226
  5. URSO [Concomitant]
     Active Substance: URSODIOL
  6. GASTROM [Concomitant]
     Active Substance: ECABET SODIUM
  7. FUROSEMIDE. [Suspect]
     Active Substance: FUROSEMIDE
     Indication: OEDEMA
     Dosage: 20 MG, QD
     Route: 042
     Dates: start: 20171106, end: 20171219
  8. LASIX [Concomitant]
     Active Substance: FUROSEMIDE
  9. OPSUMIT [Suspect]
     Active Substance: MACITENTAN
     Indication: PULMONARY ARTERIAL HYPERTENSION
     Dosage: 10 MG, QD
     Route: 048
     Dates: start: 20170905
  10. HYALEIN MINI [Concomitant]
     Active Substance: HYALURONATE SODIUM
     Dosage: UNK
  11. LIVACT [Suspect]
     Active Substance: AMINO ACIDS
     Indication: PRIMARY BILIARY CHOLANGITIS
     Dosage: 12.45 G, TID
     Route: 048
  12. FERROMIA [Concomitant]
     Active Substance: SODIUM FERROUS CITRATE
     Indication: ANAEMIA
     Dosage: 200 MG, UNK
     Dates: start: 20171002
  13. REVATIO [Suspect]
     Active Substance: SILDENAFIL CITRATE
     Indication: PULMONARY ARTERIAL HYPERTENSION
     Dosage: 20 MG, TID
     Route: 048
     Dates: start: 20170909, end: 20170925
  14. DIART [Suspect]
     Active Substance: AZOSEMIDE
     Indication: OEDEMA
     Dosage: 30 MG, QD
     Route: 048
     Dates: start: 20170915, end: 20170922
  15. DIART [Suspect]
     Active Substance: AZOSEMIDE
     Dosage: 60 MG, QD
     Route: 048
     Dates: start: 20170923
  16. DIART [Suspect]
     Active Substance: AZOSEMIDE
     Dosage: UNK
     Route: 048
  17. FUROSEMIDE. [Suspect]
     Active Substance: FUROSEMIDE
     Dosage: UNK
     Route: 065
     Dates: start: 20180102
  18. WARFARIN [Suspect]
     Active Substance: WARFARIN
     Indication: PORTAL VEIN THROMBOSIS
     Dosage: 1-1.5 MG QD
     Route: 048
     Dates: end: 20171214

REACTIONS (16)
  - Cardiac failure [Recovering/Resolving]
  - Movement disorder [Not Recovered/Not Resolved]
  - Gastric antral vascular ectasia [Not Recovered/Not Resolved]
  - Portal hypertensive gastropathy [Not Recovered/Not Resolved]
  - Argon plasma coagulation [Unknown]
  - Headache [Recovered/Resolved]
  - Ammonia increased [Recovering/Resolving]
  - Hepatic encephalopathy [Recovered/Resolved]
  - Asterixis [Recovered/Resolved]
  - Hypokalaemia [Recovered/Resolved]
  - Anaemia [Not Recovered/Not Resolved]
  - Transfusion [Recovered/Resolved]
  - Back pain [Not Recovered/Not Resolved]
  - Oedema [Not Recovered/Not Resolved]
  - Pyrexia [Recovered/Resolved]
  - Pleural effusion [Recovering/Resolving]

NARRATIVE: CASE EVENT DATE: 20170909
